FAERS Safety Report 24382669 (Version 1)
Quarter: 2024Q4

REPORT INFORMATION
  Report Type: Other
  Country: US (occurrence: US)
  Receive Date: 20241001
  Receipt Date: 20241001
  Transmission Date: 20250115
  Serious: Yes (Hospitalization)
  Sender: DEXCEL
  Company Number: US-DEXPHARM-2024-3270

PATIENT
  Age: 75 Year
  Sex: Female

DRUGS (1)
  1. LEVETIRACETAM [Suspect]
     Active Substance: LEVETIRACETAM
     Indication: Cerebral atrophy
     Dosage: LEVETIRACETAM 250 MG BID WAS STARTED

REACTIONS (4)
  - Anxiety [Unknown]
  - Restlessness [Unknown]
  - Language disorder [Unknown]
  - Drug ineffective [Unknown]
